FAERS Safety Report 8271132-5 (Version None)
Quarter: 2012Q2

REPORT INFORMATION
  Report Type: 
  Country: None (occurrence: None)
  Receive Date: 20120410
  Receipt Date: 20120329
  Transmission Date: 20120825
  Serious: Yes (Other)
  Sender: FDA-Public Use
  Company Number: US-PFIZER INC-2012081508

PATIENT
  Sex: Female
  Weight: 71.6 kg

DRUGS (14)
  1. GABAPENTIN [Concomitant]
     Indication: SYSTEMIC LUPUS ERYTHEMATOSUS
  2. IBUPROFEN [Suspect]
     Indication: RHEUMATOID ARTHRITIS
     Dosage: 800 MG, 3X/DAY
     Dates: start: 20110101
  3. CYCLOBENAZPRINE [Suspect]
     Dosage: 10 MG, 1X/DAY
  4. METFORMIN [Concomitant]
     Indication: DIABETES MELLITUS
     Dosage: 500 MG, 3X/DAY
  5. LYRICA [Suspect]
     Indication: FIBROMYALGIA
     Dosage: 75MG, DAILY
     Dates: start: 20110315, end: 20110318
  6. IBUPROFEN [Suspect]
     Indication: SYSTEMIC LUPUS ERYTHEMATOSUS
  7. CYCLOBENAZPRINE [Suspect]
     Dosage: 10 MG, 2X/DAY
     Dates: start: 20110101
  8. PROTONIX [Suspect]
     Indication: GASTRITIS
     Dosage: 40 MG, DAILY
     Route: 048
     Dates: start: 20040101
  9. VITAMIN B-12 [Concomitant]
     Indication: ANAEMIA
     Dosage: 1000 MG, MONTHLY
  10. LIPITOR [Suspect]
     Dosage: UNK
  11. NAPROXEN SODIUM [Suspect]
     Indication: FIBROMYALGIA
     Dosage: 500 MG, 3X/DAY
  12. NAPROXEN SODIUM [Suspect]
     Indication: RHEUMATOID ARTHRITIS
  13. GABAPENTIN [Concomitant]
     Indication: RHEUMATOID ARTHRITIS
     Dosage: 800 MG, 3X/DAY
  14. CLARITIN [Concomitant]
     Indication: HYPERSENSITIVITY
     Dosage: 10 MG, 1X/DAY

REACTIONS (6)
  - EYE HAEMORRHAGE [None]
  - VISION BLURRED [None]
  - NAUSEA [None]
  - GASTRIC DISORDER [None]
  - DRY MOUTH [None]
  - BOWEL MOVEMENT IRREGULARITY [None]
